FAERS Safety Report 9500156 (Version 3)
Quarter: 2013Q4

REPORT INFORMATION
  Report Type: Report from Study
  Country: US (occurrence: US)
  Receive Date: 20130905
  Receipt Date: 20131030
  Transmission Date: 20140711
  Serious: Yes (Death, Other)
  Sender: FDA-Public Use
  Company Number: PHEH2013US018604

PATIENT
  Sex: Female

DRUGS (1)
  1. TOBI [Suspect]
     Indication: PNEUMONIA PSEUDOMONAL
     Dosage: 300 MG, Q12H

REACTIONS (5)
  - Chronic obstructive pulmonary disease [Fatal]
  - Pneumonia [Fatal]
  - Emphysema [Fatal]
  - Weight decreased [Fatal]
  - Blindness [Unknown]
